FAERS Safety Report 10219027 (Version 2)
Quarter: 2014Q2

REPORT INFORMATION
  Report Type: Spontaneous
  Country: IT (occurrence: IT)
  Receive Date: 20140605
  Receipt Date: 20140610
  Transmission Date: 20141212
  Serious: Yes (Hospitalization)
  Sender: FDA-Public Use
  Company Number: IT-WATSON-2014-11611

PATIENT
  Age: 78 Year
  Sex: Female

DRUGS (6)
  1. METFORMIN (UNKNOWN) [Suspect]
     Indication: DIABETES MELLITUS
     Dosage: 3000 MG, DAILY
     Route: 048
     Dates: start: 20110530, end: 20140519
  2. DRAMION                            /00413701/ [Suspect]
     Indication: DIABETES MELLITUS
     Dosage: 30 MG, DAILY
     Route: 048
     Dates: start: 20110530, end: 20140519
  3. LIPONORM                           /00001301/ [Concomitant]
     Indication: PRODUCT USED FOR UNKNOWN INDICATION
     Dosage: UNK
     Route: 048
     Dates: start: 20110530, end: 20140519
  4. TENORMIN [Concomitant]
     Indication: PRODUCT USED FOR UNKNOWN INDICATION
     Dosage: UNK
     Route: 048
     Dates: start: 20110530, end: 20140519
  5. COMBISARTAN [Concomitant]
     Indication: PRODUCT USED FOR UNKNOWN INDICATION
     Dosage: UNK
     Route: 048
     Dates: start: 20110530, end: 20140519
  6. CYMBALTA [Concomitant]
     Indication: PRODUCT USED FOR UNKNOWN INDICATION
     Dosage: UNK
     Route: 048
     Dates: start: 20110530, end: 20140519

REACTIONS (1)
  - Hypoglycaemia [Recovered/Resolved]
